FAERS Safety Report 10085784 (Version 4)
Quarter: 2014Q2

REPORT INFORMATION
  Report Type: Spontaneous
  Country: US (occurrence: US)
  Receive Date: 20140418
  Receipt Date: 20140620
  Transmission Date: 20141212
  Serious: No
  Sender: FDA-Public Use
  Company Number: US-PFIZER INC-2014107075

PATIENT
  Age: 59 Year
  Sex: Female
  Weight: 90.7 kg

DRUGS (8)
  1. CELEBREX [Suspect]
     Indication: PAIN
     Dosage: UNK
     Route: 048
  2. METOPROLOL [Concomitant]
     Indication: HYPERTENSION
     Dosage: 100 MG, 2X/DAY
  3. FUROSEMIDE [Concomitant]
     Dosage: 80 MG, 1X/DAY
  4. QUINAPRIL [Concomitant]
     Dosage: 40 MG, 1X/DAY
  5. PRILOSEC [Concomitant]
     Dosage: UNK, 1X/DAY
  6. TYLENOL [Concomitant]
     Dosage: UNK
  7. FISH OIL [Concomitant]
     Dosage: UNK
  8. ATORVASTATIN [Concomitant]
     Dosage: 10 MG, 1X/DAY

REACTIONS (2)
  - Gait disturbance [Not Recovered/Not Resolved]
  - Condition aggravated [Not Recovered/Not Resolved]
